FAERS Safety Report 12951711 (Version 1)
Quarter: 2016Q4

REPORT INFORMATION
  Report Type: Spontaneous
  Country: US (occurrence: US)
  Receive Date: 20161117
  Receipt Date: 20161117
  Transmission Date: 20170207
  Serious: No
  Sender: FDA-Public Use
  Company Number: US-BAYER-2016-220259

PATIENT
  Age: 56 Year
  Sex: Female
  Weight: 76.19 kg

DRUGS (1)
  1. MIRALAX [Suspect]
     Active Substance: POLYETHYLENE GLYCOL 3350
     Indication: COLONOSCOPY
     Dosage: 3 DOSE, UNK
     Route: 048
     Dates: start: 201603, end: 201603

REACTIONS (2)
  - Product use issue [Unknown]
  - Wrong technique in product usage process [None]

NARRATIVE: CASE EVENT DATE: 201603
